FAERS Safety Report 14907370 (Version 1)
Quarter: 2018Q2

REPORT INFORMATION
  Report Type: Report from Study
  Country: JP (occurrence: JP)
  Receive Date: 20180517
  Receipt Date: 20180517
  Transmission Date: 20180711
  Serious: Yes (Hospitalization, Other)
  Sender: FDA-Public Use
  Company Number: JP-ROCHE-2124048

PATIENT
  Age: 69 Year
  Sex: Female

DRUGS (18)
  1. BEVACIZUMAB. [Suspect]
     Active Substance: BEVACIZUMAB
     Route: 041
     Dates: start: 20170407, end: 20170421
  2. TEMODAL [Suspect]
     Active Substance: TEMOZOLOMIDE
     Route: 048
     Dates: start: 20170616, end: 20170620
  3. TEMODAL [Suspect]
     Active Substance: TEMOZOLOMIDE
     Route: 048
     Dates: start: 20170714, end: 20170718
  4. BEVACIZUMAB. [Suspect]
     Active Substance: BEVACIZUMAB
     Indication: GLIOBLASTOMA
     Route: 041
     Dates: start: 20170203, end: 20170303
  5. BEVACIZUMAB. [Suspect]
     Active Substance: BEVACIZUMAB
     Route: 041
     Dates: start: 20180112, end: 20180323
  6. TEMODAL [Suspect]
     Active Substance: TEMOZOLOMIDE
     Route: 048
     Dates: start: 20170908, end: 20170912
  7. TEMODAL [Suspect]
     Active Substance: TEMOZOLOMIDE
     Route: 048
     Dates: start: 20171201, end: 20171205
  8. BEVACIZUMAB. [Suspect]
     Active Substance: BEVACIZUMAB
     Route: 041
     Dates: start: 20170512, end: 20171222
  9. TEMODAL [Suspect]
     Active Substance: TEMOZOLOMIDE
     Route: 048
     Dates: start: 20170324, end: 20170328
  10. TEMODAL [Suspect]
     Active Substance: TEMOZOLOMIDE
     Route: 048
     Dates: start: 20171006, end: 20171010
  11. TEMODAL [Suspect]
     Active Substance: TEMOZOLOMIDE
     Route: 048
     Dates: start: 20170519, end: 20170523
  12. TEMODAL [Suspect]
     Active Substance: TEMOZOLOMIDE
     Route: 048
     Dates: start: 20170811, end: 20170815
  13. TEMODAL [Suspect]
     Active Substance: TEMOZOLOMIDE
     Route: 048
     Dates: start: 20171229, end: 20180102
  14. TEMODAL [Suspect]
     Active Substance: TEMOZOLOMIDE
     Dosage: DOSAGE IS UNCERTAIN.
     Route: 048
     Dates: start: 2018, end: 20180223
  15. TEMODAL [Suspect]
     Active Substance: TEMOZOLOMIDE
     Route: 048
     Dates: start: 20171103, end: 20171107
  16. TEMODAL [Suspect]
     Active Substance: TEMOZOLOMIDE
     Indication: GLIOBLASTOMA
     Route: 048
     Dates: start: 20170113, end: 20170224
  17. TEMODAL [Suspect]
     Active Substance: TEMOZOLOMIDE
     Route: 048
     Dates: start: 20170421, end: 20170425
  18. TEMODAL [Suspect]
     Active Substance: TEMOZOLOMIDE
     Route: 048
     Dates: start: 20180126, end: 20180130

REACTIONS (2)
  - Extradural abscess [Unknown]
  - Seizure [Recovered/Resolved]

NARRATIVE: CASE EVENT DATE: 20180405
